FAERS Safety Report 5708323-0 (Version None)
Quarter: 2008Q2

REPORT INFORMATION
  Report Type: 
  Country: None (occurrence: None)
  Receive Date: 20080414
  Receipt Date: 19910226
  Transmission Date: 20081010
  Serious: Yes (Other)
  Sender: FDA-Public Use
  Company Number: 2004IC000509

PATIENT
  Sex: Male

DRUGS (1)
  1. OXSORALEN              (METHOXSALEN) [Suspect]
     Dosage: 40 MG; BIW; BUCC
     Route: 002

REACTIONS (4)
  - ABORTION INDUCED [None]
  - FOETAL CYSTIC HYGROMA [None]
  - HEART DISEASE CONGENITAL [None]
  - TRANSMISSION OF DRUG VIA SEMEN [None]
